FAERS Safety Report 15334440 (Version 2)
Quarter: 2018Q4

REPORT INFORMATION
  Report Type: Spontaneous
  Country: US (occurrence: US)
  Receive Date: 20180830
  Receipt Date: 20181005
  Transmission Date: 20190204
  Serious: No
  Sender: FDA-Public Use
  Company Number: US-PFIZER INC-2018346514

PATIENT
  Age: 45 Year
  Sex: Female

DRUGS (1)
  1. IBRANCE [Suspect]
     Active Substance: PALBOCICLIB
     Indication: BREAST CANCER FEMALE
     Dosage: 100 MG, ONCE A DAY (DAYS 1-21)
     Route: 048
     Dates: start: 20180727

REACTIONS (8)
  - Dyspepsia [Unknown]
  - Feeling hot [Unknown]
  - Fatigue [Unknown]
  - Pruritus [Unknown]
  - Stomatitis [Unknown]
  - Blister [Unknown]
  - Abdominal pain upper [Unknown]
  - Rash [Unknown]

NARRATIVE: CASE EVENT DATE: 20180824
